FAERS Safety Report 9514034 (Version 1)
Quarter: 2013Q3

REPORT INFORMATION
  Report Type: Spontaneous
  Country: US (occurrence: US)
  Receive Date: 20130910
  Receipt Date: 20130910
  Transmission Date: 20140515
  Serious: No
  Sender: FDA-Public Use
  Company Number: US-UPSHER-SMITH LABORATORIES, INC.-12003258

PATIENT
  Age: 62 Year
  Sex: Male

DRUGS (1)
  1. OXYBUTYNIN CHLORIDE [Suspect]
     Indication: BLADDER SPASM
     Dosage: 5 MG, TID
     Route: 048
     Dates: start: 20121023, end: 20121028

REACTIONS (6)
  - Vision blurred [Recovering/Resolving]
  - Diplopia [Recovering/Resolving]
  - Iris disorder [Not Recovered/Not Resolved]
  - Glare [Recovered/Resolved]
  - Eye pain [Recovered/Resolved]
  - Dacryostenosis acquired [Recovering/Resolving]
